FAERS Safety Report 18177119 (Version 2)
Quarter: 2020Q3

REPORT INFORMATION
  Report Type: Spontaneous
  Country: LT (occurrence: LT)
  Receive Date: 20200820
  Receipt Date: 20200916
  Transmission Date: 20201103
  Serious: Yes (Hospitalization, Other)
  Sender: FDA-Public Use
  Company Number: LT-MYLANLABS-2020M1071601

PATIENT
  Age: 44 Year
  Sex: Female
  Weight: 78 kg

DRUGS (2)
  1. PARACETAMOL [Suspect]
     Active Substance: ACETAMINOPHEN
     Indication: PRODUCT USED FOR UNKNOWN INDICATION
     Dosage: 500 MILLIGRAM (20 ? 40 TABLETS AT ONCE (THE EXACT DOSE IS UNKNOWN))
     Route: 048
     Dates: start: 20200707, end: 20200707
  2. IBUPROFEN. [Suspect]
     Active Substance: IBUPROFEN
     Indication: PRODUCT USED FOR UNKNOWN INDICATION
     Dosage: 400 MILLIGRAM
     Route: 048
     Dates: start: 20200707, end: 20200707

REACTIONS (5)
  - Suicide attempt [Unknown]
  - Asthenia [Recovered/Resolved]
  - Back pain [Recovered/Resolved]
  - Off label use [Recovered/Resolved]
  - Intentional overdose [Recovered/Resolved]

NARRATIVE: CASE EVENT DATE: 20200707
